FAERS Safety Report 8827487 (Version 1)
Quarter: 2012Q4

REPORT INFORMATION
  Report Type: Report from Study
  Country: CA (occurrence: CA)
  Receive Date: 20121008
  Receipt Date: 20121008
  Transmission Date: 20130627
  Serious: Yes (Other)
  Sender: FDA-Public Use
  Company Number: CA-JNJFOC-20120912888

PATIENT
  Age: 57 Year
  Sex: Female
  Weight: 76.1 kg

DRUGS (4)
  1. REMICADE [Suspect]
     Indication: CROHN^S DISEASE
     Route: 042
     Dates: end: 20120723
  2. REMICADE [Suspect]
     Indication: CROHN^S DISEASE
     Route: 042
  3. ENTOCORT [Concomitant]
     Route: 048
     Dates: start: 20110923
  4. CAL-D-OR [Concomitant]
     Route: 048

REACTIONS (2)
  - Cranial nerve disorder [Unknown]
  - Dizziness [Unknown]
